FAERS Safety Report 8807613 (Version 1)
Quarter: 2012Q4

REPORT INFORMATION
  Report Type: 
  Country: FR (occurrence: FR)
  Receive Date: 20120925
  Receipt Date: 20120925
  Transmission Date: 20130627
  Serious: Yes (Hospitalization, Other)
  Sender: FDA-Public Use
  Company Number: FR-PFIZER INC-2012194426

PATIENT
  Age: 82 Year
  Sex: Female

DRUGS (16)
  1. TRIATEC [Suspect]
     Dosage: 10 mg, 2x/day
     Route: 048
  2. LASILIX [Suspect]
     Dosage: 40 mg, 3x/day
     Route: 048
  3. CARDENSIEL [Suspect]
     Indication: PRODUCT USED FOR UNKNOWN INDICATION
     Dosage: 1.25 mg, 1x/day
     Route: 048
  4. DEROXAT [Suspect]
     Indication: PRODUCT USED FOR UNKNOWN INDICATION
     Dosage: 20 mg, 1x/day
     Route: 048
  5. TIAPRIDAL [Suspect]
     Indication: VASCULAR DEMENTIA
     Dosage: 5 drops in the morning and 10 drops in the evening
     Route: 048
     Dates: start: 20120110
  6. TERCIAN [Concomitant]
     Dosage: UNK
     Dates: start: 20120105, end: 20120110
  7. CORDARONE [Concomitant]
     Dosage: UNK
  8. COUMADINE [Concomitant]
     Dosage: UNK
  9. TAHOR [Concomitant]
     Dosage: UNK
  10. EFFERALGAN [Concomitant]
     Dosage: UNK
  11. BRICANYL [Concomitant]
     Dosage: UNK
     Dates: start: 20120327
  12. ATROVENT [Concomitant]
     Dosage: UNK
     Dates: start: 20120327
  13. CALCIDOSE VITAMINE D [Concomitant]
     Dosage: UNK
  14. KALEORID [Concomitant]
     Dosage: UNK
  15. LANTUS [Concomitant]
     Dosage: UNK
  16. PARIET [Concomitant]
     Dosage: UNK
     Dates: end: 20120323

REACTIONS (14)
  - Cardiac failure [Unknown]
  - Malaise [Unknown]
  - Ejection fraction decreased [Unknown]
  - Ventricular failure [Unknown]
  - Left ventricular end-diastolic pressure increased [Unknown]
  - Fall [Recovering/Resolving]
  - Face injury [Unknown]
  - Haematoma [Unknown]
  - General physical health deterioration [Unknown]
  - Balance disorder [Unknown]
  - Creatinine renal clearance decreased [Unknown]
  - C-reactive protein increased [Unknown]
  - Brain natriuretic peptide decreased [Unknown]
  - Glycosylated haemoglobin increased [Unknown]
